FAERS Safety Report 23525124 (Version 1)
Quarter: 2024Q1

REPORT INFORMATION
  Report Type: Spontaneous
  Country: IT (occurrence: IT)
  Receive Date: 20240215
  Receipt Date: 20240215
  Transmission Date: 20240410
  Serious: Yes (Hospitalization)
  Sender: FDA-Public Use
  Company Number: None

PATIENT
  Age: 67 Year
  Sex: Male
  Weight: 100 kg

DRUGS (2)
  1. LINEZOLID [Suspect]
     Active Substance: LINEZOLID
     Indication: Pyrexia
     Dosage: LINEZOLID 600 MG X2, IV 6-18 HOURS?CEFEPIME 2 G X2 IV 6AM-6PM
     Route: 065
     Dates: start: 20231022, end: 20231103
  2. CEFEPIME [Suspect]
     Active Substance: CEFEPIME HYDROCHLORIDE
     Indication: Product used for unknown indication
     Dosage: CEFEPIME 2 G X2 IV 6AM-6PM
     Route: 065

REACTIONS (3)
  - Metabolic acidosis [Recovered/Resolved]
  - Thrombocytopenia [Recovered/Resolved]
  - Confusional state [Recovered/Resolved]

NARRATIVE: CASE EVENT DATE: 20231030
